FAERS Safety Report 23111002 (Version 1)
Quarter: 2023Q4

REPORT INFORMATION
  Report Type: Spontaneous
  Country: US (occurrence: None)
  Receive Date: 20231025
  Receipt Date: 20231025
  Transmission Date: 20240109
  Serious: No
  Sender: FDA-Public Use
  Company Number: None

PATIENT
  Age: 70 Year
  Sex: Female

DRUGS (2)
  1. AMBRISENTAN [Suspect]
     Active Substance: AMBRISENTAN
     Indication: Pulmonary hypertension
     Dosage: FREQUENCY : DAILY;?
     Route: 048
  2. TADALAFIL [Suspect]
     Active Substance: TADALAFIL

REACTIONS (7)
  - Fatigue [None]
  - Sinus pain [None]
  - Paranasal sinus discomfort [None]
  - Facial pain [None]
  - Headache [None]
  - Arthralgia [None]
  - Implant site pain [None]

NARRATIVE: CASE EVENT DATE: 20231024
